FAERS Safety Report 8561925-9 (Version None)
Quarter: 2012Q3

REPORT INFORMATION
  Report Type: 
  Country: None (occurrence: None)
  Receive Date: 20120802
  Receipt Date: 20120712
  Transmission Date: 20120928
  Serious: No
  Sender: FDA-Public Use
  Company Number: US-ASTRAZENECA-2012SE48871

PATIENT
  Age: 26 Year
  Sex: Female

DRUGS (2)
  1. SEROQUEL [Suspect]
     Indication: ANXIETY
     Route: 048
  2. SEROQUEL [Suspect]
     Indication: MAJOR DEPRESSION
     Route: 048

REACTIONS (8)
  - FEELING ABNORMAL [None]
  - ADVERSE DRUG REACTION [None]
  - DRUG DOSE OMISSION [None]
  - ANXIETY [None]
  - IRRITABILITY [None]
  - HEADACHE [None]
  - PANIC ATTACK [None]
  - OFF LABEL USE [None]
